FAERS Safety Report 6299464-0 (Version None)
Quarter: 2009Q3

REPORT INFORMATION
  Report Type: 
  Country: None (occurrence: None)
  Receive Date: 20090806
  Receipt Date: 20090730
  Transmission Date: 20100115
  Serious: Yes (Other)
  Sender: FDA-Public Use
  Company Number: B0534811A

PATIENT
  Sex: Female

DRUGS (4)
  1. SERETIDE DISKUS [Suspect]
     Indication: DRUG USE FOR UNKNOWN INDICATION
     Dosage: 500MG PER DAY
     Route: 065
  2. VENTOLIN [Suspect]
     Indication: DRUG USE FOR UNKNOWN INDICATION
     Route: 065
  3. TELFAST [Suspect]
     Indication: DRUG USE FOR UNKNOWN INDICATION
     Route: 065
  4. XOLAIR [Suspect]
     Indication: ASTHMA
     Dosage: 375MG TWO TIMES PER WEEK
     Route: 058
     Dates: start: 20080312, end: 20080617

REACTIONS (1)
  - ABORTION SPONTANEOUS [None]
